FAERS Safety Report 4865233-9 (Version None)
Quarter: 2005Q4

REPORT INFORMATION
  Report Type: 
  Country: None (occurrence: None)
  Receive Date: 20051223
  Receipt Date: 20051216
  Transmission Date: 20060501
  Serious: Yes (Other)
  Sender: FDA-Public Use
  Company Number: FR-GLAXOSMITHKLINE-B0404502A

PATIENT
  Sex: Male

DRUGS (1)
  1. TOPOTECAN [Suspect]
     Route: 065

REACTIONS (2)
  - CHOLESTASIS [None]
  - HEPATOCELLULAR DAMAGE [None]
